FAERS Safety Report 4636693-3 (Version None)
Quarter: 2005Q2

REPORT INFORMATION
  Report Type: 
  Country: None (occurrence: None)
  Receive Date: 20050414
  Receipt Date: 20050331
  Transmission Date: 20051028
  Serious: Yes (Hospitalization)
  Sender: FDA-Public Use
  Company Number: 213615

PATIENT
  Age: 67 Year
  Sex: Female

DRUGS (6)
  1. HERCEPTIN [Suspect]
     Indication: BREAST CANCER METASTATIC
     Dosage: 4 MG/KG, 2 MG/KG, 1/WEEK, INTRAVENOUS
     Route: 042
     Dates: start: 20050315, end: 20050315
  2. HERCEPTIN [Suspect]
     Indication: BREAST CANCER METASTATIC
     Dosage: 4 MG/KG, 2 MG/KG, 1/WEEK, INTRAVENOUS
     Route: 042
     Dates: start: 20050322
  3. VINFLUNINE(VINFLUNINE) [Concomitant]
     Indication: BREAST CANCER METASTATIC
     Dosage: 320 MG/M2, Q3W, INTRAVENOUS
     Route: 042
     Dates: start: 20050315, end: 20050315
  4. SELOZOK (METOPROLOL SUCCINATE) [Concomitant]
  5. LORMETAZEPAM (LORMETAZEPAM) [Concomitant]
  6. LITICAN (ALIZAPRIDE HYDROCHLORIDE) [Concomitant]

REACTIONS (1)
  - INAPPROPRIATE ANTIDIURETIC HORMONE SECRETION [None]
